FAERS Safety Report 9274625 (Version 1)
Quarter: 2013Q2

REPORT INFORMATION
  Report Type: Spontaneous
  Country: US (occurrence: None)
  Receive Date: 20130429
  Receipt Date: 20130429
  Transmission Date: 20140414
  Serious: Yes (Other)
  Sender: FDA-Public Use
  Company Number: 20130193

PATIENT
  Age: 10 Year
  Sex: Female

DRUGS (4)
  1. DEXAMETHASONE SODIUM PHOSPHATE [Suspect]
     Indication: SWELLING
     Dosage: EVERY 3 WEEKS
  2. DEXAMETHASONE SODIUM PHOSPHATE [Suspect]
     Indication: RADIATION INJURY
     Dosage: EVERY 3 WEEKS
  3. BEVACIZUMAB [Suspect]
     Indication: SWELLING
     Dosage: EVERY 3 WEEKS
  4. BEVACIZUMAB [Suspect]
     Indication: RADIATION INJURY
     Dosage: EVERY 3 WEEKS

REACTIONS (1)
  - Osteonecrosis [None]
